FAERS Safety Report 9547585 (Version 1)
Quarter: 2013Q2

REPORT INFORMATION
  Report Type: Spontaneous
  Country: US (occurrence: None)
  Receive Date: 20130524
  Receipt Date: 20130524
  Transmission Date: 20140414
  Serious: Yes (Other)
  Sender: FDA-Public Use
  Company Number: PHEH2013US004246

PATIENT
  Sex: Female
  Weight: 47.6 kg

DRUGS (8)
  1. GILENYA [Suspect]
     Indication: MULTIPLE SCLEROSIS
     Route: 048
  2. BACLOFEN (BACLOFEN) [Concomitant]
  3. NEURONTIN (GABAPENTIN) [Concomitant]
  4. KLONOPIN (CLONAZEPAM) [Concomitant]
  5. MULTI-VIT (VITAMINS NOS) [Concomitant]
  6. BIOTIN (BIOTIN) [Concomitant]
  7. CALCIUM (CALCIUM) [Concomitant]
  8. FISH OIL (FISH OIL) [Concomitant]

REACTIONS (1)
  - Memory impairment [None]
